FAERS Safety Report 7604668-8 (Version None)
Quarter: 2011Q3

REPORT INFORMATION
  Report Type: 
  Country: None (occurrence: None)
  Receive Date: 20110712
  Receipt Date: 20110704
  Transmission Date: 20111222
  Serious: Yes (Hospitalization)
  Sender: FDA-Public Use
  Company Number: PHHY2011US59391

PATIENT
  Age: 16 Year
  Sex: Female

DRUGS (3)
  1. INDOMETHACIN [Suspect]
     Dosage: 100 MG, TID
  2. INDOMETHACIN [Suspect]
     Dosage: 75 MG, TID
  3. INDOMETHACIN [Suspect]
     Indication: HEADACHE
     Dosage: LOW DOSE

REACTIONS (3)
  - MYOCLONUS [None]
  - DYSKINESIA [None]
  - PALPITATIONS [None]
